FAERS Safety Report 5031171-4 (Version None)
Quarter: 2006Q2

REPORT INFORMATION
  Report Type: 
  Country: None (occurrence: None)
  Receive Date: 20060619
  Receipt Date: 20060619
  Transmission Date: 20061013
  Serious: No
  Sender: FDA-Public Use
  Company Number: None

PATIENT
  Age: 49 Year
  Sex: Male
  Weight: 92.9874 kg

DRUGS (1)
  1. CREST PRO-HEALTH -BLUE VERSION- REGULAR STRENGTH- ONLY ONE PROCTER AND [Suspect]
     Indication: DENTAL DISORDER PROPHYLAXIS
     Dosage: 30 ML MOUTH SWISH FOR 30 SEC TWICE A DAY PO
     Route: 048

REACTIONS (4)
  - ANOSMIA [None]
  - INFLUENZA [None]
  - NASOPHARYNGITIS [None]
  - VIRAL INFECTION [None]
